FAERS Safety Report 17093777 (Version 2)
Quarter: 2019Q4

REPORT INFORMATION
  Report Type: Spontaneous
  Country: JP (occurrence: JP)
  Receive Date: 20191129
  Receipt Date: 20191208
  Transmission Date: 20200122
  Serious: Yes (Hospitalization)
  Sender: FDA-Public Use
  Company Number: NVSC2019JP052136

PATIENT
  Age: 59 Year
  Sex: Male

DRUGS (1)
  1. NILOTINIB [Suspect]
     Active Substance: NILOTINIB
     Indication: CHRONIC MYELOID LEUKAEMIA
     Dosage: UNK
     Route: 065

REACTIONS (8)
  - Dysarthria [Unknown]
  - Gait disturbance [Unknown]
  - Arterial stenosis [Unknown]
  - Neurological decompensation [Unknown]
  - Dysphonia [Unknown]
  - Hemiparesis [Unknown]
  - Brain stem infarction [Unknown]
  - Locked-in syndrome [Unknown]
